FAERS Safety Report 15431887 (Version 1)
Quarter: 2018Q3

REPORT INFORMATION
  Report Type: Spontaneous
  Country: US (occurrence: US)
  Receive Date: 20180926
  Receipt Date: 20180926
  Transmission Date: 20181010
  Serious: Yes (Other)
  Sender: FDA-Public Use
  Company Number: US-FRESENIUS KABI-FK201809981

PATIENT
  Age: 26 Year
  Sex: Female

DRUGS (2)
  1. OXYTOCIN INJECTION (MANUFACTURER UNKNOWN) [Suspect]
     Active Substance: OXYTOCIN
     Indication: LABOUR INDUCTION
     Dosage: 2MU/MIN (AT START OF INDUCTION)?14 MU/MIN?18 MU/MIN
     Route: 041
  2. MISOPROSTOL. [Suspect]
     Active Substance: MISOPROSTOL
     Indication: INDUCTION OF CERVIX RIPENING
     Dosage: UNKNOWN
     Route: 065

REACTIONS (3)
  - Uterine tachysystole [Unknown]
  - Medication error [Unknown]
  - Exposure during pregnancy [Unknown]
